FAERS Safety Report 5500285-4 (Version None)
Quarter: 2007Q4

REPORT INFORMATION
  Report Type: 
  Country: None (occurrence: None)
  Receive Date: 20071025
  Receipt Date: 20071012
  Transmission Date: 20080405
  Serious: Yes (Life-Threatening, Hospitalization, Other)
  Sender: FDA-Public Use
  Company Number: 160807ISR

PATIENT
  Age: 46 Year
  Sex: Female

DRUGS (8)
  1. COPAXONE [Suspect]
     Indication: MULTIPLE SCLEROSIS
     Dosage: 20 MG (20 MG, 1 IN 1 D) SUBCUTANEOUS
     Route: 058
     Dates: start: 20070701
  2. PREGABALIN [Concomitant]
  3. TOLPERISONE [Concomitant]
  4. CYPROTERONE ACETATE [Concomitant]
  5. ZOPICLONE [Concomitant]
  6. DIANE [Concomitant]
  7. IODINE [Concomitant]
  8. ASPARTATE ZINC [Concomitant]

REACTIONS (4)
  - CEREBRAL VENOUS THROMBOSIS [None]
  - GRAND MAL CONVULSION [None]
  - HEADACHE [None]
  - MULTIPLE SCLEROSIS RELAPSE [None]
